FAERS Safety Report 8111343-2 (Version None)
Quarter: 2012Q1

REPORT INFORMATION
  Report Type: 
  Country: None (occurrence: None)
  Receive Date: 20120203
  Receipt Date: 20110914
  Transmission Date: 20120608
  Serious: No
  Sender: FDA-Public Use
  Company Number: US-GLAXOSMITHKLINE-A0944627A

PATIENT
  Age: 39 Year
  Sex: Female

DRUGS (6)
  1. LAMICTAL [Suspect]
     Indication: BIPOLAR DISORDER
     Dosage: 100MG TWICE PER DAY
     Route: 048
     Dates: start: 20110501
  2. ADDERALL 5 [Concomitant]
  3. EFFEXOR XR [Concomitant]
  4. CLONAZEPAM [Concomitant]
  5. M.V.I. [Concomitant]
  6. LAMOTRIGINE [Suspect]
     Indication: BIPOLAR DISORDER
     Dosage: 100MG TWICE PER DAY
     Route: 048
     Dates: start: 20080101, end: 20110501

REACTIONS (3)
  - TONGUE BLISTERING [None]
  - SWOLLEN TONGUE [None]
  - PAIN [None]
